FAERS Safety Report 5758617-8 (Version None)
Quarter: 2008Q2

REPORT INFORMATION
  Report Type: 
  Country: None (occurrence: None)
  Receive Date: 20080604
  Receipt Date: 20080530
  Transmission Date: 20081010
  Serious: Yes (Hospitalization)
  Sender: FDA-Public Use
  Company Number: B0523506A

PATIENT
  Age: 74 Year
  Sex: Female

DRUGS (6)
  1. CEFUROXIME [Suspect]
     Indication: DRUG USE FOR UNKNOWN INDICATION
     Route: 042
     Dates: start: 20080421, end: 20080423
  2. ENOXAPARIN SODIUM [Suspect]
     Indication: DRUG USE FOR UNKNOWN INDICATION
     Dosage: 40MG PER DAY
     Route: 058
     Dates: start: 20080419, end: 20080423
  3. ENANTYUM [Suspect]
     Indication: DRUG USE FOR UNKNOWN INDICATION
     Dosage: 50MG PER DAY
     Route: 042
     Dates: start: 20080421, end: 20080423
  4. METAMIZOLE [Suspect]
     Indication: DRUG USE FOR UNKNOWN INDICATION
     Dosage: 2G PER DAY
     Route: 042
     Dates: start: 20080421, end: 20080423
  5. TARGOCID [Suspect]
     Indication: DRUG USE FOR UNKNOWN INDICATION
     Dosage: 1G PER DAY
     Route: 042
     Dates: start: 20080421, end: 20080423
  6. BEMIPARIN [Concomitant]
     Route: 058
     Dates: start: 20080401, end: 20080429

REACTIONS (2)
  - ERYTHEMA [None]
  - PRURITUS [None]
